FAERS Safety Report 5091086-2 (Version None)
Quarter: 2006Q3

REPORT INFORMATION
  Report Type: 
  Country: None (occurrence: None)
  Receive Date: 20060829
  Receipt Date: 20060823
  Transmission Date: 20061208
  Serious: Yes (Hospitalization)
  Sender: FDA-Public Use
  Company Number: FR-RB-3773-2006

PATIENT
  Sex: Male
  Weight: 3.2 kg

DRUGS (1)
  1. BUPRENORPHINE HCL [Suspect]
     Dosage: DOSAGE UNKNOWN
     Route: 064
     Dates: end: 20051006

REACTIONS (2)
  - DRUG WITHDRAWAL SYNDROME NEONATAL [None]
  - NEONATAL ASPIRATION [None]
